FAERS Safety Report 9092047 (Version 1)
Quarter: 2013Q1

REPORT INFORMATION
  Report Type: Spontaneous
  Country: JP (occurrence: JP)
  Receive Date: 20130131
  Receipt Date: 20130131
  Transmission Date: 20140127
  Serious: Yes (Other)
  Sender: FDA-Public Use
  Company Number: PHHY2013JP008071

PATIENT
  Sex: Male

DRUGS (5)
  1. ONBREZ [Suspect]
     Indication: CHRONIC OBSTRUCTIVE PULMONARY DISEASE
     Dosage: 150 UG, UNK
  2. MEMARY [Suspect]
     Dosage: 20 MG, UNK
     Route: 048
     Dates: start: 20110913
  3. ARICEPT [Suspect]
     Dosage: 5 MG, UNK
     Route: 048
     Dates: start: 20110412
  4. IRBETAN [Suspect]
     Dosage: 200 MG, UNK
     Route: 048
     Dates: start: 20120809
  5. ADALAT CR [Suspect]
     Dosage: 20 MG, UNK
     Route: 048

REACTIONS (3)
  - Convulsion [Recovered/Resolved]
  - Delusion [Recovered/Resolved]
  - Tremor [Recovered/Resolved]
